FAERS Safety Report 24176689 (Version 3)
Quarter: 2024Q4

REPORT INFORMATION
  Report Type: Spontaneous
  Country: JP (occurrence: JP)
  Receive Date: 20240806
  Receipt Date: 20241220
  Transmission Date: 20250115
  Serious: Yes (Hospitalization, Other)
  Sender: BRISTOL-MYERS SQUIBB COMPANY
  Company Number: JP-BRISTOL-MYERS SQUIBB COMPANY-2024-122232

PATIENT
  Age: 46 Year
  Sex: Male

DRUGS (8)
  1. YERVOY [Suspect]
     Active Substance: IPILIMUMAB
     Indication: Renal cancer metastatic
     Dosage: ON 21-NOV-X, ADMINISTRATION STARTED
     Route: 041
  2. YERVOY [Suspect]
     Active Substance: IPILIMUMAB
     Dosage: ON 21-DEC-X, 2TH COURSE ADMINISTRATION STARTED
     Route: 041
  3. OPDIVO [Suspect]
     Active Substance: NIVOLUMAB
     Indication: Renal cancer metastatic
     Dosage: ON 21-NOV-X, ADMINISTRATION STARTED
     Route: 041
  4. OPDIVO [Suspect]
     Active Substance: NIVOLUMAB
     Dosage: ON 21-DEC-X, 2TH COURSE ADMINISTRATION STARTED
     Route: 041
  5. OPDIVO [Suspect]
     Active Substance: NIVOLUMAB
     Dosage: ON 24-MAY-X+1, NIVOLUMAB 240MG RESTARTED
     Route: 041
  6. OPDIVO [Suspect]
     Active Substance: NIVOLUMAB
     Dosage: ON 21-JUN-X+1, NIVOLUMAB 480MG
     Route: 041
  7. OPDIVO [Suspect]
     Active Substance: NIVOLUMAB
     Dosage: ON 2-AUG-X+1, NIVOLUMAB 480MG
     Route: 041
  8. OPDIVO [Suspect]
     Active Substance: NIVOLUMAB
     Dosage: ON 4-OCT-X+1, NIVOLUMAB 480MG
     Route: 041

REACTIONS (4)
  - Rash [Unknown]
  - Renal impairment [Unknown]
  - Diabetic ketoacidosis [Unknown]
  - Type 1 diabetes mellitus [Unknown]
